FAERS Safety Report 9660206 (Version 1)
Quarter: 2013Q4

REPORT INFORMATION
  Report Type: Not Available
  Country: US (occurrence: US)
  Receive Date: 20131031
  Receipt Date: 20131031
  Transmission Date: 20140711
  Serious: No
  Sender: FDA-Public Use
  Company Number: US-PURDUE-USA-2011-0067172

PATIENT
  Sex: 0

DRUGS (1)
  1. OXYCONTIN TABLETS [Suspect]
     Indication: PAIN
     Dosage: 80 MG, BID

REACTIONS (2)
  - Pain [Not Recovered/Not Resolved]
  - Inadequate analgesia [Not Recovered/Not Resolved]
